FAERS Safety Report 6557208-9 (Version None)
Quarter: 2010Q1

REPORT INFORMATION
  Report Type: 
  Country: None (occurrence: None)
  Receive Date: 20100127
  Receipt Date: 20100127
  Transmission Date: 20100710
  Serious: Yes (Other)
  Sender: FDA-Public Use
  Company Number: None

PATIENT
  Sex: Female

DRUGS (1)
  1. OPTIRAY 320 [Suspect]
     Indication: BREAST CANCER
     Dosage: 100 ML 3ML/SECOND IV BOLUS
     Route: 040
     Dates: start: 20091218, end: 20091218

REACTIONS (2)
  - FLUSHING [None]
  - POST PROCEDURAL COMPLICATION [None]
